FAERS Safety Report 20540234 (Version 1)
Quarter: 2022Q1

REPORT INFORMATION
  Report Type: Spontaneous
  Country: KR (occurrence: KR)
  Receive Date: 20220302
  Receipt Date: 20220302
  Transmission Date: 20220423
  Serious: Yes (Other)
  Sender: FDA-Public Use
  Company Number: KR-JNJFOC-20211137656

PATIENT
  Age: 47 Year
  Sex: Male

DRUGS (2)
  1. REMICADE [Suspect]
     Active Substance: INFLIXIMAB
     Indication: Large intestine infection
     Route: 042
  2. MESALAMINE [Concomitant]
     Active Substance: MESALAMINE
     Indication: Large intestine infection

REACTIONS (4)
  - Haematochezia [Unknown]
  - Diarrhoea [Unknown]
  - Off label use [Unknown]
  - Product use in unapproved indication [Unknown]
